FAERS Safety Report 8998219 (Version 1)
Quarter: 2013Q1

REPORT INFORMATION
  Report Type: Spontaneous
  Country: US (occurrence: US)
  Receive Date: 20130104
  Receipt Date: 20130104
  Transmission Date: 20140127
  Serious: No
  Sender: FDA-Public Use
  Company Number: US-TEVA-378752USA

PATIENT
  Sex: Female
  Weight: 74.91 kg

DRUGS (1)
  1. AZILECT [Suspect]
     Indication: PARKINSON^S DISEASE
     Dosage: 1 MILLIGRAM DAILY;
     Route: 048
     Dates: start: 201210

REACTIONS (2)
  - Nasal dryness [Recovered/Resolved]
  - Influenza like illness [Recovered/Resolved]
